FAERS Safety Report 8439831-X (Version None)
Quarter: 2012Q2

REPORT INFORMATION
  Report Type: 
  Country: None (occurrence: None)
  Receive Date: 20120615
  Receipt Date: 20120612
  Transmission Date: 20120825
  Serious: Yes (Other)
  Sender: FDA-Public Use
  Company Number: GB-PFIZER INC-2012129524

PATIENT
  Age: 62 Year
  Sex: Female
  Weight: 81 kg

DRUGS (5)
  1. ATORVASTATIN CALCIUM [Suspect]
     Dosage: UNK
     Dates: start: 20120517
  2. BENDROFLUMETHIAZIDE [Concomitant]
     Dosage: UNK
     Dates: start: 20120130
  3. ACETAMINOPHEN AND CODEINE PHOSPHATE [Concomitant]
     Dosage: UNK
     Dates: start: 20120130
  4. OMEPRAZOLE [Concomitant]
     Dosage: UNK
     Dates: start: 20120130
  5. BEZAFIBRATE [Concomitant]
     Dosage: UNK
     Dates: start: 20120517

REACTIONS (5)
  - ABDOMINAL PAIN [None]
  - NAUSEA [None]
  - WEIGHT DECREASED [None]
  - GASTROINTESTINAL DISORDER [None]
  - DECREASED APPETITE [None]
